FAERS Safety Report 9685132 (Version 1)
Quarter: 2013Q4

REPORT INFORMATION
  Report Type: Spontaneous
  Country: CA (occurrence: CA)
  Receive Date: 20131113
  Receipt Date: 20131113
  Transmission Date: 20140711
  Serious: Yes (Other)
  Sender: FDA-Public Use
  Company Number: CA-ASTRAZENECA-2013SE81133

PATIENT
  Age: 76 Year
  Sex: Female
  Weight: 84.4 kg

DRUGS (19)
  1. BRILINTA [Suspect]
     Route: 048
  2. BRILINTA [Suspect]
     Route: 048
  3. APO FUROSEMIDE [Concomitant]
  4. APO-ATORVASTATIN [Concomitant]
  5. APO-CLONAZEPAM [Concomitant]
  6. APO-CLOPIDOGREL [Concomitant]
  7. HUMALOG [Concomitant]
  8. JAMP - VITAMIN B12 1200 MCG + FOLIC ACID 1000 MCG [Concomitant]
     Dosage: 1200MCG, 1000 MCG
  9. JAMP-A.S.A [Concomitant]
  10. JAMP-DOCUSATE SODIUM [Concomitant]
  11. LANTUS [Concomitant]
     Route: 058
  12. ACEBUTALOL [Concomitant]
     Dosage: MYLAN
  13. RATIO-DILTIAZEM CD [Concomitant]
  14. RATIO-DOMPERIDONE [Concomitant]
  15. RATIO-METFORMIN [Concomitant]
  16. RATIO-PAROXETINE [Concomitant]
  17. PANTOPRAZOLE [Concomitant]
     Dosage: SANDOZ
  18. SEREVENT [Concomitant]
  19. SPIRIVA [Concomitant]

REACTIONS (2)
  - Choking sensation [Recovering/Resolving]
  - Dyspnoea [Recovering/Resolving]
